FAERS Safety Report 21197551 (Version 1)
Quarter: 2022Q3

REPORT INFORMATION
  Report Type: Spontaneous
  Country: US (occurrence: US)
  Receive Date: 20220810
  Receipt Date: 20220810
  Transmission Date: 20221027
  Serious: Yes (Other)
  Sender: FDA-Public Use
  Company Number: US-SA-SAC20220804001834

PATIENT

DRUGS (4)
  1. TAXOTERE [Suspect]
     Active Substance: DOCETAXEL
     Indication: Product used for unknown indication
     Dosage: UNK
     Dates: start: 2019
  2. HERCEPTIN [Concomitant]
     Active Substance: TRASTUZUMAB
     Dosage: UNK
  3. PERJETA [Concomitant]
     Active Substance: PERTUZUMAB
     Dosage: UNK
  4. CARBOPLATIN [Concomitant]
     Active Substance: CARBOPLATIN
     Dosage: UNK

REACTIONS (1)
  - Neuropathy peripheral [Unknown]
